FAERS Safety Report 9915231 (Version 3)
Quarter: 2014Q2

REPORT INFORMATION
  Report Type: Spontaneous
  Country: US (occurrence: US)
  Receive Date: 20140221
  Receipt Date: 20140411
  Transmission Date: 20141212
  Serious: Yes (Other)
  Sender: FDA-Public Use
  Company Number: US-009507513-1402USA007641

PATIENT
  Age: 16 Year
  Sex: Female
  Weight: 52.61 kg

DRUGS (1)
  1. IMPLANON [Suspect]
     Indication: CONTRACEPTION
     Dosage: 1 DF
     Route: 030
     Dates: start: 20110824, end: 20140228

REACTIONS (8)
  - Surgery [Recovered/Resolved]
  - Medical device complication [Recovered/Resolved]
  - General anaesthesia [Recovered/Resolved]
  - Device deployment issue [Recovered/Resolved]
  - Incorrect route of drug administration [Recovered/Resolved]
  - Vaginal haemorrhage [Unknown]
  - Acne [Unknown]
  - Weight increased [Unknown]
